FAERS Safety Report 14911010 (Version 1)
Quarter: 2018Q2

REPORT INFORMATION
  Report Type: Spontaneous
  Country: CA (occurrence: CA)
  Receive Date: 20180517
  Receipt Date: 20180517
  Transmission Date: 20180711
  Serious: Yes (Hospitalization, Other)
  Sender: FDA-Public Use
  Company Number: CA-BAXTER-2018BAX014175

PATIENT
  Age: 52 Year
  Sex: Female

DRUGS (2)
  1. VORICONAZOLE. [Suspect]
     Active Substance: VORICONAZOLE
     Indication: PRODUCT USED FOR UNKNOWN INDICATION
     Dosage: DOSAGE FORM NOT SPECIFIED
     Route: 065
  2. FLUCONAZOLE IN SODIUM CHLORIDE INJECTION USP [Suspect]
     Active Substance: FLUCONAZOLE
     Indication: EYE INFECTION FUNGAL
     Dosage: DOSAGE FORM NOT SPECIFIED
     Route: 065

REACTIONS (6)
  - Drug ineffective [Unknown]
  - Keratitis fungal [Unknown]
  - Off label use [Unknown]
  - Product use in unapproved indication [Unknown]
  - Corneal perforation [Unknown]
  - Visual impairment [Unknown]
